FAERS Safety Report 16687731 (Version 1)
Quarter: 2019Q3

REPORT INFORMATION
  Report Type: Spontaneous
  Country: TT (occurrence: TT)
  Receive Date: 20190809
  Receipt Date: 20190809
  Transmission Date: 20191004
  Serious: Yes (Hospitalization)
  Sender: FDA-Public Use
  Company Number: TT-SCIEGEN PHARMACEUTICALS INC-2019SCILIT00235

PATIENT
  Age: 49 Year
  Sex: Male

DRUGS (3)
  1. NORMAL SALINE [Interacting]
     Active Substance: SODIUM CHLORIDE
  2. HYDROCHLOROTHIAZIDE TABLETS [Suspect]
     Active Substance: HYDROCHLOROTHIAZIDE
  3. ANGIOTENSIN-CONVERTING ENZYME INHIBITORS [Suspect]
     Active Substance: UNSPECIFIED INGREDIENT

REACTIONS (3)
  - Hyponatraemia [Recovered/Resolved]
  - Delirium [Recovered/Resolved]
  - Electrocardiogram abnormal [Recovered/Resolved]
